FAERS Safety Report 9467777 (Version 2)
Quarter: 2013Q4

REPORT INFORMATION
  Report Type: Spontaneous
  Country: IT (occurrence: IT)
  Receive Date: 20130821
  Receipt Date: 20131017
  Transmission Date: 20140711
  Serious: Yes (Hospitalization)
  Sender: FDA-Public Use
  Company Number: IT-RANBAXY-2013R1-72293

PATIENT
  Age: 22 Year
  Sex: Male

DRUGS (2)
  1. AMOXICILLIN [Suspect]
     Indication: TONSILLITIS
     Dosage: 100 MG DAILY
     Route: 048
     Dates: start: 20130611, end: 20130617
  2. FLURBIPROFEN [Suspect]
     Indication: TONSILLITIS
     Dosage: 100 MG, DAILY
     Route: 048
     Dates: start: 20130611, end: 20130617

REACTIONS (2)
  - Face oedema [Recovered/Resolved]
  - Urticaria [Recovered/Resolved]
